FAERS Safety Report 23350746 (Version 2)
Quarter: 2024Q1

REPORT INFORMATION
  Report Type: Spontaneous
  Country: IN (occurrence: IN)
  Receive Date: 20231229
  Receipt Date: 20240108
  Transmission Date: 20240409
  Serious: Yes (Death)
  Sender: FDA-Public Use
  Company Number: IN-GILEAD-2023-0656081

PATIENT
  Age: 42 Year
  Sex: Male

DRUGS (2)
  1. AMPHOTERICIN B [Suspect]
     Active Substance: AMPHOTERICIN B
     Indication: Mucormycosis
     Dosage: UNK UNK, UNKNOWN FREQ.
     Route: 042
  2. AMPHOTERICIN B [Suspect]
     Active Substance: AMPHOTERICIN B
     Indication: Aspergillus infection

REACTIONS (1)
  - Drug ineffective [Fatal]
